FAERS Safety Report 9197299 (Version 1)
Quarter: 2013Q1

REPORT INFORMATION
  Report Type: Report from Study
  Country: AU (occurrence: AU)
  Receive Date: 20130328
  Receipt Date: 20130328
  Transmission Date: 20140127
  Serious: Yes (Other)
  Sender: FDA-Public Use
  Company Number: AU-ROCHE-1207956

PATIENT
  Age: 65 Year
  Sex: Female

DRUGS (3)
  1. ACTEMRA [Suspect]
     Indication: RHEUMATOID ARTHRITIS
     Route: 042
  2. BUSCOPAN [Concomitant]
  3. NEXIUM [Concomitant]

REACTIONS (2)
  - Gastric ulcer [Recovering/Resolving]
  - Hiatus hernia [Unknown]
